FAERS Safety Report 18752936 (Version 2)
Quarter: 2021Q1

REPORT INFORMATION
  Report Type: Report from Study
  Country: US (occurrence: US)
  Receive Date: 20210118
  Receipt Date: 20210202
  Transmission Date: 20210419
  Serious: No
  Sender: FDA-Public Use
  Company Number: NVSC2021US007742

PATIENT
  Sex: Female

DRUGS (2)
  1. COSENTYX [Suspect]
     Active Substance: SECUKINUMAB
     Indication: PSORIASIS
     Dosage: 300 MG, ONCE WEEKLY FOR 5 WEEKS, THEN ONCE EVERY 4 WEEKS
     Route: 058
     Dates: start: 20210104
  2. COSENTYX [Suspect]
     Active Substance: SECUKINUMAB
     Dosage: 300 MG, ONCE WEEKLY FOR 5 WEEKS, THEN ONCE EVERY 4 WEEKS
     Route: 058
     Dates: start: 20210111

REACTIONS (2)
  - Injection site bruising [Recovering/Resolving]
  - Psoriasis [Unknown]
